FAERS Safety Report 23958854 (Version 1)
Quarter: 2024Q2

REPORT INFORMATION
  Report Type: Spontaneous
  Country: PT (occurrence: PT)
  Receive Date: 20240611
  Receipt Date: 20240611
  Transmission Date: 20240715
  Serious: Yes (Hospitalization, Other)
  Sender: FDA-Public Use
  Company Number: PT-NOVITIUMPHARMA-2024PTNVP01016

PATIENT
  Age: 37 Year
  Sex: Female

DRUGS (4)
  1. LIDOCAINE HYDROCHLORIDE [Suspect]
     Active Substance: LIDOCAINE HYDROCHLORIDE
     Indication: Spinal anaesthesia
  2. BUPIVACAINE [Concomitant]
     Active Substance: BUPIVACAINE
     Indication: Spinal anaesthesia
  3. SUFENTANIL [Concomitant]
     Active Substance: SUFENTANIL
     Indication: Spinal anaesthesia
  4. SODIUM CHLORIDE [Concomitant]
     Active Substance: SODIUM CHLORIDE
     Indication: Spinal anaesthesia

REACTIONS (3)
  - Apnoea [Recovered/Resolved]
  - Paraesthesia [Recovered/Resolved]
  - Exposure during pregnancy [Unknown]
